FAERS Safety Report 14057789 (Version 4)
Quarter: 2017Q4

REPORT INFORMATION
  Report Type: Spontaneous
  Country: JP (occurrence: JP)
  Receive Date: 20171006
  Receipt Date: 20171228
  Transmission Date: 20180321
  Serious: Yes (Congenital Anomaly, Other)
  Sender: FDA-Public Use
  Company Number: JP-GLAXOSMITHKLINE-JP2017JPN152474

PATIENT
  Age: 0 Day
  Sex: Male

DRUGS (1)
  1. LAMICTAL [Suspect]
     Active Substance: LAMOTRIGINE
     Dosage: 75 MG, 1D
     Route: 064

REACTIONS (4)
  - Foetal exposure during pregnancy [Unknown]
  - Teratogenicity [Unknown]
  - Anomaly of external ear congenital [Not Recovered/Not Resolved]
  - Deafness congenital [Unknown]

NARRATIVE: CASE EVENT DATE: 20170926
